FAERS Safety Report 7682627-7 (Version None)
Quarter: 2011Q3

REPORT INFORMATION
  Report Type: 
  Country: None (occurrence: None)
  Receive Date: 20110815
  Receipt Date: 20110801
  Transmission Date: 20111222
  Serious: Yes (Other)
  Sender: FDA-Public Use
  Company Number: TR-MYLANLABS-2011S1016002

PATIENT
  Age: 55 Year
  Sex: Male

DRUGS (4)
  1. INSULIN DETEMIR [Concomitant]
     Indication: TYPE 2 DIABETES MELLITUS
     Dosage: 16 UNITS AT NIGHT
     Route: 065
  2. INSULIN ASPART [Concomitant]
     Indication: TYPE 2 DIABETES MELLITUS
     Dosage: 3 X 12 UNITS
     Route: 065
  3. FUROSEMIDE [Suspect]
     Indication: CONGESTIVE CARDIOMYOPATHY
     Dosage: 20 MG/HOUR (INCREASED FROM 10 MG/HOUR)
     Route: 041
  4. FUROSEMIDE [Suspect]
     Dosage: 10 MG/HOUR (INCREASED TO 20 MG/HOUR)
     Route: 041

REACTIONS (1)
  - LEUKOCYTOCLASTIC VASCULITIS [None]
